FAERS Safety Report 8827662 (Version 1)
Quarter: 2012Q4

REPORT INFORMATION
  Report Type: 
  Country: US (occurrence: US)
  Receive Date: 20121008
  Receipt Date: 20121008
  Transmission Date: 20130627
  Serious: No
  Sender: FDA-Public Use
  Company Number: US-PFIZER INC-2012247843

PATIENT
  Age: 52 Year
  Sex: Female

DRUGS (5)
  1. CHANTIX [Suspect]
     Indication: SMOKING CESSATION THERAPY
     Dosage: UNK
     Route: 048
     Dates: start: 2011, end: 2011
  2. LOVASTATIN [Concomitant]
     Indication: BLOOD CHOLESTEROL INCREASED
     Dosage: 40 mg, daily
  3. DIOVAN (VALSARTAN) [Concomitant]
     Indication: CARDIAC DISORDER
     Dosage: 40 mg, daily
  4. DIOVAN (VALSARTAN) [Concomitant]
     Indication: BLOOD CHOLESTEROL INCREASED
  5. PREMARIN [Concomitant]
     Indication: POSTOPERATIVE CARE
     Dosage: 0.625 mg, daily

REACTIONS (2)
  - Abnormal dreams [Recovered/Resolved]
  - Insomnia [Recovered/Resolved]
